FAERS Safety Report 23111606 (Version 1)
Quarter: 2023Q4

REPORT INFORMATION
  Report Type: Spontaneous
  Country: US (occurrence: US)
  Receive Date: 20231026
  Receipt Date: 20231026
  Transmission Date: 20240110
  Serious: Yes (Other)
  Sender: FDA-Public Use
  Company Number: US-TEVA-2023-US-2937437

PATIENT
  Age: 77 Year
  Sex: Female

DRUGS (2)
  1. OXAZEPAM [Suspect]
     Active Substance: OXAZEPAM
     Indication: Product used for unknown indication
     Dosage: 15 MG
     Route: 065
  2. OXAZEPAM [Suspect]
     Active Substance: OXAZEPAM
     Dosage: 10MG
     Route: 065

REACTIONS (9)
  - Drug dependence [Unknown]
  - Head discomfort [Unknown]
  - Feeling abnormal [Unknown]
  - Sensory processing sensitivity [Unknown]
  - Stress [Unknown]
  - Cerebral disorder [Unknown]
  - Intentional product misuse [Unknown]
  - Adverse event [Unknown]
  - Product compounding quality issue [Unknown]

NARRATIVE: CASE EVENT DATE: 20231014
